FAERS Safety Report 25876354 (Version 2)
Quarter: 2025Q4

REPORT INFORMATION
  Report Type: Spontaneous
  Country: US (occurrence: US)
  Receive Date: 20251003
  Receipt Date: 20251103
  Transmission Date: 20260117
  Serious: No
  Sender: CSL BEHRING
  Company Number: US-BEH-2025219950

PATIENT
  Age: 8 Year
  Sex: Female

DRUGS (2)
  1. HIZENTRA [Suspect]
     Active Substance: HUMAN IMMUNOGLOBULIN G
     Indication: Humoral immune defect
     Dosage: 4 G, QOW
     Route: 058
     Dates: start: 202305
  2. HIZENTRA [Suspect]
     Active Substance: HUMAN IMMUNOGLOBULIN G
     Dosage: UNK
     Route: 065
     Dates: start: 20251001

REACTIONS (3)
  - Abnormal weight gain [Recovered/Resolved]
  - Appetite disorder [Recovered/Resolved]
  - Injection site bruising [Recovered/Resolved]

NARRATIVE: CASE EVENT DATE: 20250823
